FAERS Safety Report 7040330-0 (Version None)
Quarter: 2010Q4

REPORT INFORMATION
  Report Type: 
  Country: None (occurrence: None)
  Receive Date: 20101012
  Receipt Date: 20101006
  Transmission Date: 20110411
  Serious: No
  Sender: FDA-Public Use
  Company Number: US-PFIZER INC-2010127150

PATIENT
  Sex: Male
  Weight: 79.365 kg

DRUGS (7)
  1. LIPITOR [Suspect]
     Indication: BLOOD CHOLESTEROL INCREASED
     Dosage: 10 MG, 1X/DAY
     Route: 048
  2. GLYNASE [Concomitant]
     Indication: DIABETES MELLITUS
     Dosage: 120 MG, TWO TO THREE TIMES A DAY
     Route: 048
  3. ATENOLOL [Concomitant]
     Indication: HYPERTENSION
     Dosage: 20 MG, 1X/DAY
  4. AMITRIPTYLINE [Concomitant]
     Indication: MYALGIA
     Dosage: 20 MG, 1X/DAY
     Dates: start: 20100101
  5. AMITRIPTYLINE [Concomitant]
     Indication: NEURALGIA
  6. GABAPENTIN [Concomitant]
     Indication: MYALGIA
     Dosage: 300 MG, 2X/DAY
     Dates: start: 20100101
  7. GABAPENTIN [Concomitant]
     Indication: NEURALGIA

REACTIONS (4)
  - ARTHRALGIA [None]
  - MYALGIA [None]
  - PAIN IN EXTREMITY [None]
  - TENDON PAIN [None]
